FAERS Safety Report 16366295 (Version 1)
Quarter: 2019Q2

REPORT INFORMATION
  Report Type: Spontaneous
  Country: US (occurrence: US)
  Receive Date: 20190529
  Receipt Date: 20190529
  Transmission Date: 20190711
  Serious: Yes (Hospitalization)
  Sender: FDA-Public Use
  Company Number: US-VERTEX PHARMACEUTICALS-2019-004740

PATIENT
  Age: 19 Year
  Sex: Male

DRUGS (5)
  1. ALBUTEROL                          /00139501/ [Concomitant]
     Active Substance: ALBUTEROL
  2. ZENPEP [Concomitant]
     Active Substance: PANCRELIPASE AMYLASE\PANCRELIPASE LIPASE\PANCRELIPASE PROTEASE
  3. SYMDEKO [Suspect]
     Active Substance: IVACAFTOR\TEZACAFTOR
     Indication: CYSTIC FIBROSIS
     Dosage: 1 TAB (100MG TEZA/150MG IVA) ALTERNATED WITH 1 TAB (150 MG IVA) EVERY OTHER DAY
     Route: 048
     Dates: start: 20180403
  4. AMIKACIN. [Concomitant]
     Active Substance: AMIKACIN
  5. TWOCAL HN [Concomitant]
     Active Substance: DIETARY SUPPLEMENT

REACTIONS (2)
  - Infective pulmonary exacerbation of cystic fibrosis [Unknown]
  - Obstruction [Unknown]

NARRATIVE: CASE EVENT DATE: 201904
